FAERS Safety Report 9323979 (Version 3)
Quarter: 2014Q3

REPORT INFORMATION
  Report Type: Spontaneous
  Country: US (occurrence: US)
  Receive Date: 20130603
  Receipt Date: 20140722
  Transmission Date: 20150326
  Serious: Yes (Hospitalization, Other)
  Sender: FDA-Public Use
  Company Number: US-009507513-1305USA018028

PATIENT
  Sex: Female
  Weight: 80.27 kg

DRUGS (2)
  1. NUVARING [Suspect]
     Active Substance: ETHINYL ESTRADIOL\ETONOGESTREL
     Indication: HAEMORRHAGE
     Dosage: 0.12-0.015 MG, Q24H
     Route: 067
     Dates: start: 20100127, end: 20110617
  2. MACROBID [Concomitant]
     Active Substance: NITROFURANTOIN\NITROFURANTOIN MONOHYDRATE
     Dosage: 100 MG, Q12H
     Route: 048
     Dates: start: 20100127, end: 20100129

REACTIONS (11)
  - Deep vein thrombosis [Unknown]
  - Uterine leiomyoma [Unknown]
  - Vision blurred [Unknown]
  - Off label use [Unknown]
  - Dyspnoea [Unknown]
  - Pulmonary embolism [Unknown]
  - Adverse event [Unknown]
  - Thyroid disorder [Unknown]
  - Limb injury [Unknown]
  - Autoimmune thyroiditis [Unknown]
  - Dizziness [Unknown]

NARRATIVE: CASE EVENT DATE: 20100127
